FAERS Safety Report 23441742 (Version 2)
Quarter: 2024Q1

REPORT INFORMATION
  Report Type: Report from Study
  Country: US (occurrence: None)
  Receive Date: 20240125
  Receipt Date: 20240313
  Transmission Date: 20240410
  Serious: Yes (Other)
  Sender: FDA-Public Use
  Company Number: 2024A013757

PATIENT
  Age: 26703 Day
  Weight: 86.2 kg

DRUGS (1)
  1. TEZEPELUMAB-EKKO [Suspect]
     Active Substance: TEZEPELUMAB-EKKO
     Route: 058
     Dates: start: 202312

REACTIONS (5)
  - Foreign body aspiration [Unknown]
  - Bronchitis [Recovering/Resolving]
  - Fall [Recovering/Resolving]
  - Lymphoedema [Not Recovered/Not Resolved]
  - Weight increased [Unknown]

NARRATIVE: CASE EVENT DATE: 20240110
